FAERS Safety Report 7774187-7 (Version None)
Quarter: 2011Q3

REPORT INFORMATION
  Report Type: 
  Country: None (occurrence: None)
  Receive Date: 20110923
  Receipt Date: 20110920
  Transmission Date: 20111222
  Serious: Yes (Life-Threatening, Hospitalization, Other)
  Sender: FDA-Public Use
  Company Number: JP-PFIZER INC-2011193065

PATIENT
  Age: 45 Year
  Sex: Female
  Weight: 38 kg

DRUGS (18)
  1. PANTOL [Concomitant]
     Indication: GASTROINTESTINAL HYPERMOTILITY
     Dosage: 500 MG, 4X/DAY
     Route: 042
  2. DIPOTASSIUM PHOSPHATE [Concomitant]
     Indication: ELECTROLYTE SUBSTITUTION THERAPY
     Dosage: 20 ML, 1X/DAY
     Route: 042
  3. MIDAZOLAM [Concomitant]
     Indication: ENDOTRACHEAL INTUBATION
     Dosage: UNK
     Route: 041
  4. ZYVOX [Suspect]
     Indication: LIVER ABSCESS
  5. MULTIVITAMIN ADDITIVE [Concomitant]
     Indication: ELECTROLYTE SUBSTITUTION THERAPY
     Dosage: UNK, 1X/DAY
     Route: 042
  6. ZYVOX [Suspect]
     Indication: SEPSIS
     Dosage: 600 MG, 2X/DAY
     Route: 041
     Dates: start: 20110807, end: 20110809
  7. HUMULIN R [Concomitant]
     Indication: DIABETES MELLITUS
     Dosage: UNK
     Route: 041
  8. BISOLVON [Concomitant]
     Indication: PRODUCTIVE COUGH
     Dosage: 4 MG, 2X/DAY
     Route: 042
  9. REHABIX K2 [Concomitant]
     Indication: ELECTROLYTE SUBSTITUTION THERAPY
     Dosage: 250 ML, 1X/DAY
     Route: 042
  10. MAGNESIUM SULFATE [Concomitant]
     Indication: ELECTROLYTE SUBSTITUTION THERAPY
     Dosage: 10 ML, 1X/DAY
     Route: 042
  11. ARGININE HYDROCHLORIDE [Concomitant]
     Indication: MELAS SYNDROME
     Dosage: 180 ML, 1X/DAY
     Route: 042
  12. SODIUM BICARBONATE [Concomitant]
     Indication: ACIDOSIS
     Dosage: 250 MG/L, 2X/DAY
     Route: 042
  13. ASPARA K [Concomitant]
     Indication: ELECTROLYTE SUBSTITUTION THERAPY
     Dosage: 10 MEQ, 1X/DAY
     Route: 042
  14. MANGANESE CHLORIDE [Concomitant]
     Indication: ELECTROLYTE SUBSTITUTION THERAPY
     Dosage: 2 ML, 1X/DAY
     Route: 042
  15. ZOSYN [Concomitant]
     Indication: SEPSIS
     Dosage: 4.5 G, 3X/DAY
     Route: 042
  16. AMINIC [Concomitant]
     Indication: ELECTROLYTE SUBSTITUTION THERAPY
     Dosage: 600 ML, 1X/DAY
     Route: 042
  17. NOREPINEPHRINE [Concomitant]
     Indication: SHOCK
     Dosage: UNK
     Route: 041
  18. DOBUTAMINE HYDROCHLORIDE [Concomitant]
     Indication: SHOCK
     Dosage: UNK
     Route: 041

REACTIONS (3)
  - LACTIC ACIDOSIS [None]
  - GASTROINTESTINAL HAEMORRHAGE [None]
  - SHOCK [None]
